FAERS Safety Report 4583329-6 (Version None)
Quarter: 2005Q1

REPORT INFORMATION
  Report Type: 
  Country: None (occurrence: None)
  Receive Date: 20050125
  Receipt Date: 20040826
  Transmission Date: 20050727
  Serious: No
  Sender: FDA-Public Use
  Company Number: USA040156225

PATIENT
  Age: 90 Year
  Sex: Female
  Weight: 63 kg

DRUGS (6)
  1. FORTEO [Suspect]
     Indication: LUMBAR VERTEBRAL FRACTURE
     Dosage: 20 UG DAY
     Dates: start: 20030930
  2. FORTEO [Suspect]
     Indication: OSTEOPOROSIS
     Dosage: 20 UG DAY
     Dates: start: 20030930
  3. ALLEGRA [Concomitant]
  4. THYROID TAB [Concomitant]
  5. POTASSIUM CHLORIDE [Concomitant]
  6. LEXAPRO [Concomitant]

REACTIONS (8)
  - BLOOD PRESSURE ABNORMAL [None]
  - FEELING ABNORMAL [None]
  - HEADACHE [None]
  - INJECTION SITE HAEMORRHAGE [None]
  - MUSCLE SPASMS [None]
  - SKIN DISCOLOURATION [None]
  - VISUAL ACUITY REDUCED [None]
  - VISUAL DISTURBANCE [None]
